FAERS Safety Report 10477636 (Version 2)
Quarter: 2014Q3

REPORT INFORMATION
  Report Type: Report from Study
  Country: CA (occurrence: CA)
  Receive Date: 20140926
  Receipt Date: 20140926
  Transmission Date: 20150326
  Serious: Yes (Other)
  Sender: FDA-Public Use
  Company Number: CA-JNJFOC-20140707833

PATIENT
  Sex: Female
  Weight: 73 kg

DRUGS (14)
  1. REMICADE [Suspect]
     Active Substance: INFLIXIMAB
     Indication: IRITIS
     Route: 042
     Dates: start: 20131125
  2. REMICADE [Suspect]
     Active Substance: INFLIXIMAB
     Indication: RHEUMATOID ARTHRITIS
     Route: 042
     Dates: start: 201309
  3. REMICADE [Suspect]
     Active Substance: INFLIXIMAB
     Indication: ANKYLOSING SPONDYLITIS
     Route: 042
     Dates: start: 20131125
  4. REMICADE [Suspect]
     Active Substance: INFLIXIMAB
     Indication: ANKYLOSING SPONDYLITIS
     Route: 042
     Dates: start: 201309
  5. ZOPLICONE [Concomitant]
     Active Substance: ZOPICLONE
     Route: 048
  6. QUETIAPINE [Concomitant]
     Active Substance: QUETIAPINE
     Route: 065
  7. REMICADE [Suspect]
     Active Substance: INFLIXIMAB
     Indication: ANKYLOSING SPONDYLITIS
     Dosage: 7TH DOSE
     Route: 042
     Dates: start: 20130624, end: 20140624
  8. REMICADE [Suspect]
     Active Substance: INFLIXIMAB
     Indication: RHEUMATOID ARTHRITIS
     Route: 042
     Dates: start: 20131125
  9. QUETIAPINE [Concomitant]
     Active Substance: QUETIAPINE
     Dosage: AT BEDTIME
     Route: 048
  10. TRAZODONE [Concomitant]
     Active Substance: TRAZODONE HYDROCHLORIDE
     Route: 048
  11. REMICADE [Suspect]
     Active Substance: INFLIXIMAB
     Indication: RHEUMATOID ARTHRITIS
     Dosage: 7TH DOSE
     Route: 042
     Dates: start: 20130624, end: 20140624
  12. IBUPROFEN. [Concomitant]
     Active Substance: IBUPROFEN
     Route: 048
  13. REMICADE [Suspect]
     Active Substance: INFLIXIMAB
     Indication: IRITIS
     Route: 042
     Dates: start: 201309
  14. REMICADE [Suspect]
     Active Substance: INFLIXIMAB
     Indication: IRITIS
     Dosage: 7TH DOSE
     Route: 042
     Dates: start: 20130624, end: 20140624

REACTIONS (9)
  - Infusion related reaction [Unknown]
  - Rash [Unknown]
  - Arthritis [Unknown]
  - Weight increased [Unknown]
  - Skin irritation [Unknown]
  - Pruritus generalised [Unknown]
  - Fibromyalgia [Unknown]
  - Off label use [Unknown]
  - Influenza [Unknown]

NARRATIVE: CASE EVENT DATE: 2014
